FAERS Safety Report 9834727 (Version 1)
Quarter: 2014Q1

REPORT INFORMATION
  Report Type: Spontaneous
  Country: FR (occurrence: FR)
  Receive Date: 20140122
  Receipt Date: 20140122
  Transmission Date: 20141002
  Serious: Yes (Death, Other)
  Sender: FDA-Public Use
  Company Number: FR-BAXTER-2014BAX002284

PATIENT
  Age: 57 Year
  Sex: Male

DRUGS (5)
  1. ENDOXAN 2000 MG, LYOPHILISAT POUR SOLUTION INJECTABLE [Suspect]
     Indication: VASCULITIS
     Dosage: 400 MG/M2
     Route: 042
     Dates: start: 20130416, end: 201309
  2. SOLUPRED [Suspect]
     Indication: VASCULITIS
     Route: 040
     Dates: start: 20130416
  3. SOLUPRED [Suspect]
     Route: 048
  4. FORTUM [Concomitant]
     Indication: PNEUMONIA
     Route: 065
     Dates: start: 201306
  5. CIFLOX [Concomitant]
     Indication: PNEUMONIA
     Route: 065
     Dates: start: 201306

REACTIONS (3)
  - Biliary tract disorder [Fatal]
  - Hepatic encephalopathy [Fatal]
  - Pneumonia [Unknown]
